FAERS Safety Report 8120944-7 (Version None)
Quarter: 2012Q1

REPORT INFORMATION
  Report Type: 
  Country: None (occurrence: None)
  Receive Date: 20120203
  Receipt Date: 20120127
  Transmission Date: 20120608
  Serious: Yes (Death, Hospitalization, Other)
  Sender: FDA-Public Use
  Company Number: 2012SP004996

PATIENT
  Age: 70 Year
  Sex: Female

DRUGS (2)
  1. PEG-INTRON [Suspect]
     Indication: HEPATITIS C
  2. VICTRELIS [Suspect]
     Indication: HEPATITIS C

REACTIONS (6)
  - ASCITES [None]
  - RENAL FAILURE [None]
  - GASTRIC DISORDER [None]
  - BLOOD GLUCOSE DECREASED [None]
  - HAEMORRHAGE [None]
  - HEPATIC CIRRHOSIS [None]
